FAERS Safety Report 4872150-7 (Version None)
Quarter: 2005Q4

REPORT INFORMATION
  Report Type: 
  Country: None (occurrence: None)
  Receive Date: 20051230
  Receipt Date: 20051221
  Transmission Date: 20060501
  Serious: Yes (Hospitalization)
  Sender: FDA-Public Use
  Company Number: 05-NIP00139

PATIENT
  Age: 62 Year
  Sex: Male

DRUGS (16)
  1. NIPENT [Suspect]
     Indication: NON-HODGKIN'S LYMPHOMA
     Dosage: 0.381 MG (8 MG, Q 21 DAYS), INTRAVENOUS
     Route: 042
     Dates: start: 20050727
  2. RITUXUAN (RITUXIMAB) [Suspect]
     Indication: NON-HODGKIN'S LYMPHOMA
     Dosage: 35.7143 MG (750 MG, Q 21 DAYS), INTRAVENOUS
     Route: 042
     Dates: start: 20050803
  3. CYTOXAN [Suspect]
     Indication: NON-HODGKIN'S LYMPHOMA
     Dosage: 57.1429MG (1200 MG, Q 21 DAYS), INTRAVENOUS
     Route: 042
     Dates: start: 20050727
  4. CRESTOR (ROSUVASTATIN CALCIUM) (TABLETS) [Concomitant]
  5. ALTACE (RAMIPRIL) (TABLETS) [Concomitant]
  6. ATENOLOL [Concomitant]
  7. EFFEXOR [Concomitant]
  8. TYLENOL PM (DIPHENHYDRAMINE, PARACETAMOL) (TABLETS) [Concomitant]
  9. ASA (ACETYLSALICYLIC ACID (ACETYLSALICYLIC ACID) [Concomitant]
  10. VITAMIN C (ASCORBIC ACID) [Concomitant]
  11. ALLOPURINOL [Concomitant]
  12. ACYCLOVIR [Concomitant]
  13. BACTRIM DS (SULFAMETHOXAZOLE, TRIMETHOPRIM) TABLETS) [Concomitant]
  14. PHENERGAN [Concomitant]
  15. AMBIEN [Concomitant]
  16. BACTRIM (SULFAMETHOXAZOLE, TRIMETHOPRIM ) (TABLETS) [Concomitant]

REACTIONS (5)
  - ATRIAL FIBRILLATION [None]
  - CARDIAC FAILURE CONGESTIVE [None]
  - CARDIOMEGALY [None]
  - PNEUMONIA [None]
  - PULMONARY OEDEMA [None]
